FAERS Safety Report 6663043-3 (Version None)
Quarter: 2010Q2

REPORT INFORMATION
  Report Type: 
  Country: None (occurrence: None)
  Receive Date: 20100401
  Receipt Date: 20100322
  Transmission Date: 20101027
  Serious: Yes (Other)
  Sender: FDA-Public Use
  Company Number: US-ELI_LILLY_AND_COMPANY-US201001003726

PATIENT
  Age: 87 Year
  Sex: Female

DRUGS (7)
  1. HUMATROPE [Suspect]
     Indication: BLOOD GROWTH HORMONE
     Dosage: 0.6 MG, EACH EVENING
     Dates: start: 20040101, end: 20090101
  2. HUMATROPE [Suspect]
     Dosage: 0.6 MG, EACH EVENING
     Dates: start: 20090101
  3. HYDROCORTISONE [Concomitant]
     Dosage: UNK, UNKNOWN
  4. TRILEPTAL [Concomitant]
     Dosage: UNK, UNKNOWN
  5. POTASSIUM [Concomitant]
     Dosage: UNK, UNKNOWN
  6. BABY ASPIRIN [Concomitant]
     Dosage: UNK, UNKNOWN
  7. VITAMINS [Concomitant]
     Dosage: UNK, UNKNOWN

REACTIONS (9)
  - ASTHENIA [None]
  - CEREBROVASCULAR ACCIDENT [None]
  - CONFUSIONAL STATE [None]
  - DRUG DOSE OMISSION [None]
  - LUNG NEOPLASM MALIGNANT [None]
  - MEMORY IMPAIRMENT [None]
  - MOBILITY DECREASED [None]
  - MUSCULAR WEAKNESS [None]
  - SPEECH DISORDER [None]
